FAERS Safety Report 5148201-1 (Version None)
Quarter: 2006Q4

REPORT INFORMATION
  Report Type: 
  Country: None (occurrence: None)
  Receive Date: 20060918
  Receipt Date: 20060210
  Transmission Date: 20070319
  Serious: Yes (Other)
  Sender: FDA-Public Use
  Company Number: US-JNJFOC-20060203118

PATIENT
  Age: 58 Year
  Sex: Female
  Weight: 47.6277 kg

DRUGS (1)
  1. TOPAMAX [Suspect]
     Indication: MIGRAINE PROPHYLAXIS
     Dates: start: 20050901

REACTIONS (4)
  - DEPRESSION [None]
  - INSOMNIA [None]
  - SWELLING [None]
  - WEIGHT DECREASED [None]
